FAERS Safety Report 13770871 (Version 1)
Quarter: 2017Q3

REPORT INFORMATION
  Report Type: Spontaneous
  Country: US (occurrence: US)
  Receive Date: 20170720
  Receipt Date: 20170720
  Transmission Date: 20171127
  Serious: Yes (Hospitalization)
  Sender: FDA-Public Use
  Company Number: None

PATIENT
  Age: 15 Year
  Sex: Female
  Weight: 46.4 kg

DRUGS (6)
  1. METHOTREXATE. [Suspect]
     Active Substance: METHOTREXATE
     Dates: end: 20170525
  2. MERCAPTOPURINE. [Suspect]
     Active Substance: MERCAPTOPURINE
     Dates: end: 20170621
  3. CYCLOPHOSPHAMIDE. [Suspect]
     Active Substance: CYCLOPHOSPHAMIDE
     Dates: end: 20170608
  4. VINCRISTINE SULFATE. [Suspect]
     Active Substance: VINCRISTINE SULFATE
     Dates: end: 20170629
  5. CYTARABINE. [Suspect]
     Active Substance: CYTARABINE
     Dates: end: 20170618
  6. ONCASPAR [Suspect]
     Active Substance: PEGASPARGASE
     Dates: end: 20170622

REACTIONS (9)
  - Urinary tract infection fungal [None]
  - Blood culture positive [None]
  - Hypotension [None]
  - Dyspnoea [None]
  - Clostridium test positive [None]
  - Tachypnoea [None]
  - Escherichia infection [None]
  - Tachycardia [None]
  - Febrile neutropenia [None]

NARRATIVE: CASE EVENT DATE: 20170705
